FAERS Safety Report 6445004-2 (Version None)
Quarter: 2009Q4

REPORT INFORMATION
  Report Type: 
  Country: None (occurrence: None)
  Receive Date: 20091118
  Receipt Date: 20091105
  Transmission Date: 20100525
  Serious: Yes (Hospitalization)
  Sender: FDA-Public Use
  Company Number: DE-MEDIMMUNE-MEDI-0007825

PATIENT

DRUGS (1)
  1. SYNAGIS [Suspect]
     Dates: start: 20081007, end: 20081201

REACTIONS (2)
  - OBSTRUCTIVE AIRWAYS DISORDER [None]
  - RESPIRATORY SYNCYTIAL VIRUS INFECTION [None]
